FAERS Safety Report 8767784 (Version 1)
Quarter: 2012Q4

REPORT INFORMATION
  Report Type: 
  Country: US (occurrence: US)
  Receive Date: 20120904
  Receipt Date: 20120904
  Transmission Date: 20130627
  Serious: No
  Sender: FDA-Public Use
  Company Number: US-AMGEN-USASP2012048563

PATIENT
  Age: 59 Year
  Sex: Female
  Weight: 62.13 kg

DRUGS (8)
  1. ENBREL [Suspect]
     Indication: RHEUMATOID ARTHRITIS
     Dosage: 50 mg, qwk
     Route: 058
     Dates: start: 20120710, end: 20120814
  2. METHOTREXATE [Concomitant]
     Indication: RHEUMATOID ARTHRITIS
     Dosage: 20 mg, qwk
     Route: 048
     Dates: start: 20110630
  3. GLUCOSAMINE [Concomitant]
     Dosage: UNK
  4. OMEPRAZOLE [Concomitant]
     Dosage: UNK
  5. ASPIRIN [Concomitant]
     Dosage: UNK
  6. CALCIUM CITRATE WITH VITAMIN D [Concomitant]
     Dosage: UNK
  7. OMEGA-3                            /06852001/ [Concomitant]
     Dosage: UNK
  8. CINNAMON                           /01647501/ [Concomitant]
     Dosage: UNK

REACTIONS (6)
  - Skin mass [Recovering/Resolving]
  - Haemorrhage [Not Recovered/Not Resolved]
  - Scab [Not Recovered/Not Resolved]
  - Skin burning sensation [Unknown]
  - Injection site erythema [Recovering/Resolving]
  - Rash [Recovering/Resolving]
